FAERS Safety Report 6591175-7 (Version None)
Quarter: 2010Q1

REPORT INFORMATION
  Report Type: 
  Country: None (occurrence: None)
  Receive Date: 20100219
  Receipt Date: 20100211
  Transmission Date: 20100710
  Serious: Yes (Hospitalization)
  Sender: FDA-Public Use
  Company Number: FR-ROCHE-668905

PATIENT
  Age: 39 Year
  Sex: Female

DRUGS (1)
  1. TAMIFLU [Suspect]
     Indication: PROPHYLAXIS
     Route: 048
     Dates: start: 20090904, end: 20090909

REACTIONS (6)
  - ABDOMINAL PAIN [None]
  - DELIRIUM [None]
  - DISINHIBITION [None]
  - HALLUCINATION, VISUAL [None]
  - NAUSEA [None]
  - PARAESTHESIA [None]
